FAERS Safety Report 22332859 (Version 2)
Quarter: 2023Q2

REPORT INFORMATION
  Report Type: Spontaneous
  Country: US (occurrence: US)
  Receive Date: 20230517
  Receipt Date: 20230620
  Transmission Date: 20230722
  Serious: No
  Sender: FDA-Public Use
  Company Number: US-PFIZER INC-202300188807

PATIENT
  Age: 65 Year
  Sex: Female
  Weight: 78.47 kg

DRUGS (1)
  1. EUCRISA [Suspect]
     Active Substance: CRISABOROLE
     Indication: Dermatitis atopic
     Dosage: UNK; (COUNT SIZE: 2.5G )
     Dates: start: 2019

REACTIONS (1)
  - Urinary tract infection [Unknown]
